FAERS Safety Report 10493067 (Version 1)
Quarter: 2014Q4

REPORT INFORMATION
  Report Type: Spontaneous
  Country: US (occurrence: US)
  Receive Date: 20141002
  Receipt Date: 20141002
  Transmission Date: 20150528
  Serious: No
  Sender: FDA-Public Use
  Company Number: US-GLAXOSMITHKLINE-A1078658A

PATIENT
  Sex: Female

DRUGS (14)
  1. LOSARTAN POTASSIUM. [Concomitant]
     Active Substance: LOSARTAN POTASSIUM
  2. FERROUS GLUCONATE [Concomitant]
     Active Substance: FERROUS GLUCONATE
  3. LORATADINE. [Concomitant]
     Active Substance: LORATADINE
  4. ADVAIR HFA [Suspect]
     Active Substance: FLUTICASONE PROPIONATE\SALMETEROL XINAFOATE
     Indication: PRODUCT USED FOR UNKNOWN INDICATION
     Route: 065
     Dates: start: 20121116
  5. CITALOPRAM [Concomitant]
     Active Substance: CITALOPRAM HYDROBROMIDE
  6. ASPIRIN. [Concomitant]
     Active Substance: ASPIRIN
  7. TIMOLOL MALEAT [Concomitant]
  8. DOCUSATE [Concomitant]
     Active Substance: DOCUSATE
  9. FIBER LAXATIVE [Concomitant]
     Active Substance: CALCIUM POLYCARBOPHIL
  10. SIMVASTATIN. [Concomitant]
     Active Substance: SIMVASTATIN
  11. OXYBUTYNIN [Concomitant]
     Active Substance: OXYBUTYNIN
  12. LAMOTRIGINE. [Concomitant]
     Active Substance: LAMOTRIGINE
  13. RISPERIDONE. [Concomitant]
     Active Substance: RISPERIDONE
  14. SUCRALFATE. [Concomitant]
     Active Substance: SUCRALFATE

REACTIONS (1)
  - Underdose [Unknown]
